FAERS Safety Report 5515508-5 (Version None)
Quarter: 2007Q4

REPORT INFORMATION
  Report Type: 
  Country: None (occurrence: None)
  Receive Date: 20071113
  Receipt Date: 20070309
  Transmission Date: 20080405
  Serious: No
  Sender: FDA-Public Use
  Company Number: A0642608A

PATIENT
  Age: 75 Year
  Sex: Male

DRUGS (8)
  1. COREG [Suspect]
     Indication: DRUG USE FOR UNKNOWN INDICATION
     Dosage: 12.5MG TWICE PER DAY
     Route: 048
  2. LOTREL [Concomitant]
  3. FUROSEMIDE [Concomitant]
  4. MOBIC [Concomitant]
  5. ULTRAM [Concomitant]
  6. OMEPRAZOLE [Concomitant]
  7. PROSCAR [Concomitant]
  8. INHALER [Concomitant]

REACTIONS (1)
  - DYSPNOEA EXERTIONAL [None]
